FAERS Safety Report 23439137 (Version 1)
Quarter: 2024Q1

REPORT INFORMATION
  Report Type: Spontaneous
  Country: US (occurrence: None)
  Receive Date: 20240124
  Receipt Date: 20240124
  Transmission Date: 20240410
  Serious: Yes (Death)
  Sender: FDA-Public Use
  Company Number: None

PATIENT
  Age: 92 Year
  Sex: Female

DRUGS (1)
  1. PIRFENIDONE [Suspect]
     Active Substance: PIRFENIDONE
     Indication: Idiopathic pulmonary fibrosis
     Dosage: 267MG TID ORAL
     Route: 048
     Dates: start: 20231206, end: 20240101

REACTIONS (9)
  - Asthenia [None]
  - Sepsis [None]
  - Organ failure [None]
  - Hyponatraemia [None]
  - Mental status changes [None]
  - Interstitial lung disease [None]
  - Troponin increased [None]
  - Brain natriuretic peptide increased [None]
  - Chest X-ray abnormal [None]

NARRATIVE: CASE EVENT DATE: 20240101
